FAERS Safety Report 10767660 (Version 2)
Quarter: 2015Q1

REPORT INFORMATION
  Report Type: Report from Study
  Country: US (occurrence: US)
  Receive Date: 20150205
  Receipt Date: 20150327
  Transmission Date: 20150721
  Serious: Yes (Other)
  Sender: FDA-Public Use
  Company Number: PHEH2014US021583

PATIENT
  Age: 56 Year
  Sex: Female
  Weight: 60.32 kg

DRUGS (2)
  1. CYMBALTA [Suspect]
     Active Substance: DULOXETINE HYDROCHLORIDE
     Indication: PRODUCT USED FOR UNKNOWN INDICATION
     Route: 065
  2. GILENYA [Suspect]
     Active Substance: FINGOLIMOD HYDROCHLORIDE
     Indication: MULTIPLE SCLEROSIS
     Dosage: 0.5 MG, QD
     Route: 048
     Dates: start: 20141021, end: 20150118

REACTIONS (7)
  - Fatigue [Not Recovered/Not Resolved]
  - Dizziness [Unknown]
  - Hepatic enzyme increased [Not Recovered/Not Resolved]
  - Weight decreased [Not Recovered/Not Resolved]
  - Bradycardia [Unknown]
  - White blood cell count decreased [Not Recovered/Not Resolved]
  - Tongue neoplasm malignant stage unspecified [Not Recovered/Not Resolved]

NARRATIVE: CASE EVENT DATE: 20141021
